FAERS Safety Report 4688943-5 (Version None)
Quarter: 2005Q2

REPORT INFORMATION
  Report Type: 
  Country: None (occurrence: None)
  Receive Date: 20050613
  Receipt Date: 20050602
  Transmission Date: 20051028
  Serious: Yes (Other)
  Sender: FDA-Public Use
  Company Number: FR-ROCHE-406517

PATIENT
  Age: 35 Year
  Sex: Female

DRUGS (2)
  1. LOXEN LP [Suspect]
     Indication: THREATENED LABOUR
     Route: 048
     Dates: start: 20040513, end: 20040621
  2. SALBUTAMOL [Suspect]
     Indication: THREATENED LABOUR
     Route: 050
     Dates: start: 20040513, end: 20040621

REACTIONS (9)
  - ABORTION INDUCED [None]
  - CEREBRAL HAEMORRHAGE FOETAL [None]
  - CEREBRAL ISCHAEMIA [None]
  - DILATATION VENTRICULAR [None]
  - DRUG EXPOSURE DURING PREGNANCY [None]
  - INTRA-UTERINE DEATH [None]
  - MITRAL VALVE CALCIFICATION [None]
  - NEONATAL DISORDER [None]
  - PLATELET COUNT DECREASED [None]
